FAERS Safety Report 12625002 (Version 1)
Quarter: 2016Q3

REPORT INFORMATION
  Report Type: Spontaneous
  Country: US (occurrence: None)
  Receive Date: 20160804
  Receipt Date: 20160804
  Transmission Date: 20161109
  Serious: Yes (Death)
  Sender: FDA-Public Use
  Company Number: None

PATIENT
  Age: 67 Year
  Sex: Female
  Weight: 93.3 kg

DRUGS (1)
  1. ENOXAPARIN [Suspect]
     Active Substance: ENOXAPARIN
     Indication: THROMBOSIS PROPHYLAXIS
     Dates: start: 20160730, end: 20160731

REACTIONS (7)
  - Retroperitoneal haematoma [None]
  - Rash [None]
  - Confusional state [None]
  - Dysuria [None]
  - Atrial fibrillation [None]
  - Extravasation [None]
  - Abdominal pain [None]

NARRATIVE: CASE EVENT DATE: 20160730
